FAERS Safety Report 23536118 (Version 2)
Quarter: 2024Q1

REPORT INFORMATION
  Report Type: Other
  Country: LK (occurrence: None)
  Receive Date: 20240219
  Receipt Date: 20240304
  Transmission Date: 20240410
  Serious: Yes (Other)
  Sender: FDA-Public Use
  Company Number: LK-ROCHE-3510849

PATIENT
  Age: 67 Year
  Sex: Male

DRUGS (1)
  1. BEVACIZUMAB [Suspect]
     Active Substance: BEVACIZUMAB
     Indication: Macular oedema
     Dosage: 2 DOSES
     Route: 050

REACTIONS (4)
  - Endophthalmitis [Unknown]
  - Vitritis infective [Unknown]
  - Off label use [Unknown]
  - Off label use [Unknown]
